FAERS Safety Report 11873165 (Version 1)
Quarter: 2015Q4

REPORT INFORMATION
  Report Type: Spontaneous
  Country: US (occurrence: US)
  Receive Date: 20151228
  Receipt Date: 20151228
  Transmission Date: 20160305
  Serious: Yes (Other)
  Sender: FDA-Public Use
  Company Number: US-SA-2015SA214273

PATIENT
  Age: 48 Year
  Sex: Male

DRUGS (2)
  1. TOUJEO [Suspect]
     Active Substance: INSULIN GLARGINE
     Dosage: DOSE:80 UNIT(S)
     Route: 065
     Dates: start: 20151001, end: 20151215
  2. SOLOSTAR [Concomitant]
     Active Substance: DEVICE
     Dates: start: 20151001, end: 20151215

REACTIONS (3)
  - Nasopharyngitis [Unknown]
  - Hypoaesthesia [Unknown]
  - Cellulitis [Unknown]

NARRATIVE: CASE EVENT DATE: 20151001
